FAERS Safety Report 5454574-2 (Version None)
Quarter: 2007Q3

REPORT INFORMATION
  Report Type: 
  Country: None (occurrence: None)
  Receive Date: 20070917
  Receipt Date: 20060921
  Transmission Date: 20080115
  Serious: No
  Sender: FDA-Public Use
  Company Number: US-ASTRAZENECA-2006UW18474

PATIENT
  Sex: Female

DRUGS (1)
  1. SEROQUEL [Suspect]
     Indication: DRUG DEPENDENCE
     Route: 048

REACTIONS (4)
  - ABNORMAL DREAMS [None]
  - AGITATION [None]
  - FEAR [None]
  - PANIC DISORDER [None]
